FAERS Safety Report 8597754-X (Version None)
Quarter: 2012Q3

REPORT INFORMATION
  Report Type: 
  Country: None (occurrence: None)
  Receive Date: 20120816
  Receipt Date: 20120813
  Transmission Date: 20120928
  Serious: Yes (Other)
  Sender: FDA-Public Use
  Company Number: PHEH2012US015895

PATIENT
  Sex: Female
  Weight: 50.9 kg

DRUGS (4)
  1. DASATINIB [Concomitant]
  2. ANTIBIOTICS [Concomitant]
  3. LETROZOLE [Concomitant]
  4. ZOMETA [Suspect]
     Indication: METASTASES TO BONE
     Route: 042
     Dates: start: 20100720

REACTIONS (2)
  - BREAST CANCER METASTATIC [None]
  - UPPER RESPIRATORY TRACT INFECTION [None]
